FAERS Safety Report 13006494 (Version 2)
Quarter: 2017Q1

REPORT INFORMATION
  Report Type: Spontaneous
  Country: JP (occurrence: JP)
  Receive Date: 20161207
  Receipt Date: 20170203
  Transmission Date: 20170428
  Serious: Yes (Other)
  Sender: FDA-Public Use
  Company Number: PHJP2016JP035502

PATIENT
  Age: 64 Year
  Sex: Male

DRUGS (1)
  1. SANDOSTATIN [Suspect]
     Active Substance: OCTREOTIDE ACETATE
     Indication: ACROMEGALY
     Dosage: 300 MG, UNK
     Route: 058

REACTIONS (4)
  - Drug effect incomplete [Not Recovered/Not Resolved]
  - Lung neoplasm malignant [Unknown]
  - Gastric cancer [Unknown]
  - Cerebral infarction [Unknown]

NARRATIVE: CASE EVENT DATE: 1998
